FAERS Safety Report 5529515-X (Version None)
Quarter: 2007Q4

REPORT INFORMATION
  Report Type: 
  Country: None (occurrence: None)
  Receive Date: 20071129
  Receipt Date: 20071121
  Transmission Date: 20080405
  Serious: Yes (Hospitalization)
  Sender: FDA-Public Use
  Company Number: US-GENENTECH-251735

PATIENT
  Sex: Male
  Weight: 81.8 kg

DRUGS (11)
  1. AVASTIN [Suspect]
     Indication: PANCREATIC CARCINOMA
     Dosage: 10 MG/KG, Q2W
     Route: 042
     Dates: start: 20070911
  2. GEMZAR [Suspect]
     Indication: PANCREATIC CARCINOMA
     Dosage: 1500 MG/M2, Q2W
     Route: 042
     Dates: start: 20070911
  3. PROTONIX [Concomitant]
     Indication: DRUG USE FOR UNKNOWN INDICATION
     Dosage: 40 MG, QD
     Route: 048
  4. GLUCOPHAGE [Concomitant]
     Indication: DRUG USE FOR UNKNOWN INDICATION
     Dosage: 40 MG, BID
  5. ZOFRAN [Concomitant]
     Indication: DRUG USE FOR UNKNOWN INDICATION
     Dosage: 8 MG, PRN
  6. VICODIN [Concomitant]
     Indication: DRUG USE FOR UNKNOWN INDICATION
     Dosage: UNK, PRN
     Route: 048
  7. ZOCOR [Concomitant]
     Indication: DRUG USE FOR UNKNOWN INDICATION
     Dosage: 15 MG, BID
  8. ASPIRIN [Concomitant]
     Indication: DRUG USE FOR UNKNOWN INDICATION
     Dosage: 81 MG, QD
     Route: 048
  9. LANTUS [Concomitant]
     Indication: DRUG USE FOR UNKNOWN INDICATION
  10. NOVOLOG [Concomitant]
     Indication: DRUG USE FOR UNKNOWN INDICATION
  11. COREG CR [Concomitant]
     Indication: DRUG USE FOR UNKNOWN INDICATION

REACTIONS (2)
  - ABDOMINAL PAIN [None]
  - CHOLECYSTITIS [None]
